FAERS Safety Report 12129943 (Version 6)
Quarter: 2016Q4

REPORT INFORMATION
  Report Type: Report from Study
  Country: None (occurrence: ES)
  Receive Date: 20160229
  Receipt Date: 20161104
  Transmission Date: 20170206
  Serious: Yes (Death)
  Sender: FDA-Public Use
  Company Number: ES-ABBVIE-16P-144-1570141-00

PATIENT
  Age: 75 Year
  Sex: Male
  Weight: 76 kg

DRUGS (11)
  1. ACETYLSALICYLIC ACID [Concomitant]
     Active Substance: ASPIRIN
     Indication: PRODUCT USED FOR UNKNOWN INDICATION
  2. CLEXANE [Concomitant]
     Active Substance: ENOXAPARIN SODIUM
     Indication: PRODUCT USED FOR UNKNOWN INDICATION
  3. SIMVASTATINA (SIMVASTATIN) [Concomitant]
     Indication: HYPERLIPIDAEMIA
     Dosage: 20 MG/24H
     Dates: start: 2007
  4. ACENOCOUMAROL (SINTROM) [Concomitant]
     Active Substance: ACENOCOUMAROL
     Indication: CARDIAC FLUTTER
     Dosage: INR 2.5
     Dates: start: 2006
  5. COLESTYRAMINE (RESINCOLESTIRAMINA) [Concomitant]
     Indication: BLOOD BILIRUBIN ABNORMAL
     Dates: start: 20110530
  6. ATENOLOL. [Concomitant]
     Active Substance: ATENOLOL
     Indication: ATRIAL FIBRILLATION
     Dates: start: 20050930
  7. DOXAZOSIN [Concomitant]
     Active Substance: DOXAZOSIN\DOXAZOSIN MESYLATE
     Indication: HYPERTENSION
     Dates: start: 20150209
  8. HUMIRA [Suspect]
     Active Substance: ADALIMUMAB
     Indication: PSORIASIS
     Route: 058
     Dates: start: 20090525, end: 20151223
  9. CO-DIOVAN (HYDROCHLOROTHIAZIDE W/VALSARTAN) [Concomitant]
     Indication: HYPERTENSION
     Dosage: 12.5+80 MG/24H
     Dates: start: 2007
  10. OMEPRAZOLE (OMEPRAZOL) [Concomitant]
     Indication: ABDOMINAL PAIN UPPER
     Dates: start: 20081201
  11. CLOPIDOGREL [Concomitant]
     Active Substance: CLOPIDOGREL BISULFATE
     Indication: PRODUCT USED FOR UNKNOWN INDICATION

REACTIONS (2)
  - Cerebral haematoma [Fatal]
  - Cerebrovascular disorder [Fatal]

NARRATIVE: CASE EVENT DATE: 20160113
